FAERS Safety Report 5153844-5 (Version None)
Quarter: 2006Q4

REPORT INFORMATION
  Report Type: 
  Country: None (occurrence: None)
  Receive Date: 20061120
  Receipt Date: 20061107
  Transmission Date: 20070319
  Serious: Yes (Hospitalization)
  Sender: FDA-Public Use
  Company Number: JP-AVENTIS-200613491JP

PATIENT
  Age: 76 Year
  Sex: Male

DRUGS (1)
  1. AMARYL [Suspect]
     Indication: DIABETES MELLITUS
     Route: 048
     Dates: start: 20020201, end: 20061029

REACTIONS (5)
  - ARRHYTHMIA [None]
  - ATRIOVENTRICULAR BLOCK [None]
  - DIABETES MELLITUS INADEQUATE CONTROL [None]
  - SINUS ARREST [None]
  - TACHYCARDIA [None]
